FAERS Safety Report 5662688-7 (Version None)
Quarter: 2008Q1

REPORT INFORMATION
  Report Type: 
  Country: None (occurrence: None)
  Receive Date: 20080313
  Receipt Date: 20080211
  Transmission Date: 20080703
  Serious: No
  Sender: FDA-Public Use
  Company Number: US-BAYER-200813882NA

PATIENT
  Age: 43 Year

DRUGS (1)
  1. CIPRO [Suspect]
     Indication: DRUG USE FOR UNKNOWN INDICATION
     Dosage: TOTAL DAILY DOSE: 500 MG  UNIT DOSE: 250 MG
     Route: 048
     Dates: start: 20080201

REACTIONS (3)
  - NECK PAIN [None]
  - SKIN BURNING SENSATION [None]
  - TENDONITIS [None]
